FAERS Safety Report 5239864-0 (Version None)
Quarter: 2007Q1

REPORT INFORMATION
  Report Type: 
  Country: None (occurrence: None)
  Receive Date: 20070212
  Receipt Date: 20070125
  Transmission Date: 20070707
  Serious: Yes (Other)
  Sender: FDA-Public Use
  Company Number: 2007RR-05532

PATIENT
  Age: 47 Year
  Sex: Male
  Weight: 76 kg

DRUGS (3)
  1. SIMVASTATIN [Suspect]
     Indication: HYPERCHOLESTEROLAEMIA
     Dosage: 40 MG, ORAL
     Route: 048
     Dates: start: 20061204, end: 20061226
  2. NICOTINE [Concomitant]
  3. NICOTINELL [Concomitant]

REACTIONS (2)
  - RASH [None]
  - SKIN EXFOLIATION [None]
